FAERS Safety Report 13705082 (Version 8)
Quarter: 2018Q2

REPORT INFORMATION
  Report Type: Report from Study
  Country: None (occurrence: US)
  Receive Date: 20170630
  Receipt Date: 20180612
  Transmission Date: 20180711
  Serious: Yes (Hospitalization, Other)
  Sender: FDA-Public Use
  Company Number: US-ABBVIE-17K-163-1948358-00

PATIENT
  Age: 66 Year
  Sex: Female
  Weight: 78.09 kg

DRUGS (14)
  1. HUMIRA [Suspect]
     Active Substance: ADALIMUMAB
     Dosage: LOADING DOSE
     Route: 058
     Dates: start: 20160701, end: 20160701
  2. FLONASE [Concomitant]
     Active Substance: FLUTICASONE PROPIONATE
     Indication: SEASONAL ALLERGY
  3. HUMIRA [Suspect]
     Active Substance: ADALIMUMAB
     Route: 058
     Dates: start: 20160715, end: 20170505
  4. HUMIRA [Suspect]
     Active Substance: ADALIMUMAB
     Route: 058
     Dates: start: 20170602
  5. GABAPENTIN. [Concomitant]
     Active Substance: GABAPENTIN
     Indication: RESTLESS LEGS SYNDROME
  6. ALENDRONATE SODIUM. [Concomitant]
     Active Substance: ALENDRONATE SODIUM
     Indication: BONE LOSS
     Dates: end: 2018
  7. TYLENOL [Concomitant]
     Active Substance: ACETAMINOPHEN
     Indication: PRODUCT USED FOR UNKNOWN INDICATION
  8. CITALOPRAMUM [Concomitant]
     Indication: PRODUCT USED FOR UNKNOWN INDICATION
  9. DICYCLOMINE [Concomitant]
     Active Substance: DICYCLOMINE HYDROCHLORIDE
     Indication: CROHN^S DISEASE
  10. VIACTIV CALCIUM PLUS VITAMIN D + K [Concomitant]
     Indication: PRODUCT USED FOR UNKNOWN INDICATION
  11. HUMIRA [Suspect]
     Active Substance: ADALIMUMAB
     Indication: CROHN^S DISEASE
     Dosage: LOADING DOSE
     Route: 058
     Dates: start: 20160617, end: 20160617
  12. PRAMIPEXOLE. [Concomitant]
     Active Substance: PRAMIPEXOLE
     Indication: RESTLESS LEGS SYNDROME
  13. ALENDRONATE SODIUM. [Concomitant]
     Active Substance: ALENDRONATE SODIUM
     Indication: OSTEOARTHRITIS
  14. SERTRALINE [Concomitant]
     Active Substance: SERTRALINE HYDROCHLORIDE
     Indication: DEPRESSION

REACTIONS (18)
  - Device loosening [Recovering/Resolving]
  - Foot fracture [Recovering/Resolving]
  - Dyspepsia [Unknown]
  - Limb injury [Recovering/Resolving]
  - Post-traumatic pain [Recovering/Resolving]
  - Angina pectoris [Unknown]
  - Diarrhoea [Unknown]
  - Gastrooesophageal reflux disease [Not Recovered/Not Resolved]
  - Pain in extremity [Recovered/Resolved]
  - Myocardial infarction [Unknown]
  - Osteopenia [Not Recovered/Not Resolved]
  - Osteoarthritis [Recovered/Resolved]
  - Abdominal pain [Unknown]
  - Bacterial infection [Unknown]
  - Coronary artery occlusion [Not Recovered/Not Resolved]
  - Fall [Recovering/Resolving]
  - Atrial fibrillation [Recovered/Resolved]
  - Abdominal pain upper [Unknown]

NARRATIVE: CASE EVENT DATE: 2016
